FAERS Safety Report 11021936 (Version 10)
Quarter: 2016Q2

REPORT INFORMATION
  Report Type: Report from Study
  Country: US (occurrence: US)
  Receive Date: 20150413
  Receipt Date: 20160505
  Transmission Date: 20160815
  Serious: Yes (Hospitalization, Other)
  Sender: FDA-Public Use
  Company Number: PHHY2014US144312

PATIENT
  Age: 23 Year
  Sex: Female
  Weight: 102 kg

DRUGS (19)
  1. TACROLIMUS. [Suspect]
     Active Substance: TACROLIMUS
     Dosage: 2.5 MG (1.5 MG IN AM AND 1 MG IN PM)
     Route: 048
     Dates: start: 20140128, end: 20140128
  2. TACROLIMUS. [Suspect]
     Active Substance: TACROLIMUS
     Dosage: 1 MG, BID
     Route: 048
     Dates: start: 20140129, end: 20140209
  3. TACROLIMUS. [Suspect]
     Active Substance: TACROLIMUS
     Dosage: 3.0 MG, BID
     Route: 048
     Dates: start: 20140214
  4. MYCOPHENOLATE MOFETIL. [Suspect]
     Active Substance: MYCOPHENOLATE MOFETIL
     Dosage: 360 MG, QID
     Route: 048
     Dates: start: 20140316
  5. PREDNISONE. [Concomitant]
     Active Substance: PREDNISONE
     Indication: PRODUCT USED FOR UNKNOWN INDICATION
     Dosage: UNK
     Route: 065
     Dates: start: 20150526
  6. SIMULECT [Suspect]
     Active Substance: BASILIXIMAB
     Indication: RENAL TRANSPLANT
     Dosage: 20 MG, TWICE
     Route: 042
     Dates: start: 20130808, end: 20130812
  7. MYCOPHENOLATE MOFETIL. [Suspect]
     Active Substance: MYCOPHENOLATE MOFETIL
     Indication: IMMUNOSUPPRESSANT DRUG THERAPY
     Dosage: 360 MG, QID
     Route: 048
     Dates: start: 20130814, end: 20140126
  8. TACROLIMUS. [Suspect]
     Active Substance: TACROLIMUS
     Dosage: 4 MG, QD
     Route: 048
     Dates: start: 20160209, end: 20160210
  9. ASTAGRAF XL [Concomitant]
     Active Substance: TACROLIMUS
     Indication: PROPHYLAXIS
  10. MYCOPHENOLATE MOFETIL. [Suspect]
     Active Substance: MYCOPHENOLATE MOFETIL
     Dosage: 1000 MG, BID
     Route: 048
     Dates: start: 20150811, end: 20160211
  11. MYCOPHENOLATE MOFETIL. [Suspect]
     Active Substance: MYCOPHENOLATE MOFETIL
     Dosage: 1500 MG, QD
     Route: 048
     Dates: start: 20160212, end: 20160212
  12. SIMULECT [Suspect]
     Active Substance: BASILIXIMAB
     Indication: IMMUNOSUPPRESSANT DRUG THERAPY
  13. MYCOPHENOLATE MOFETIL. [Suspect]
     Active Substance: MYCOPHENOLATE MOFETIL
     Dosage: 1000 MG, BID
     Route: 048
     Dates: start: 20150415, end: 20150730
  14. TACROLIMUS. [Suspect]
     Active Substance: TACROLIMUS
     Indication: RENAL TRANSPLANT
     Dosage: 3 MG, BID
     Route: 048
     Dates: start: 20130809, end: 20130809
  15. TACROLIMUS. [Suspect]
     Active Substance: TACROLIMUS
     Dosage: 8 MG, QD
     Route: 048
     Dates: start: 20150811, end: 20160208
  16. MYCOPHENOLATE MOFETIL. [Suspect]
     Active Substance: MYCOPHENOLATE MOFETIL
     Indication: RENAL TRANSPLANT
     Dosage: 1000 MG, BID
     Route: 048
     Dates: start: 20130809, end: 20130810
  17. MYCOPHENOLATE MOFETIL. [Suspect]
     Active Substance: MYCOPHENOLATE MOFETIL
     Dosage: 750 MG, BID
     Route: 048
     Dates: start: 20150731, end: 20150810
  18. TACROLIMUS. [Suspect]
     Active Substance: TACROLIMUS
     Indication: IMMUNOSUPPRESSANT DRUG THERAPY
     Dosage: 1.5 MG, BID
     Route: 048
     Dates: start: 20140109, end: 20140127
  19. ASTAGRAF XL [Concomitant]
     Active Substance: TACROLIMUS
     Indication: IMMUNOSUPPRESSION
     Dosage: 3 MG, BID
     Route: 065
     Dates: start: 20150618

REACTIONS (29)
  - Vomiting [Unknown]
  - Hypocalcaemia [Recovering/Resolving]
  - Chest pain [Recovered/Resolved]
  - Cough [Recovering/Resolving]
  - Malaise [Recovering/Resolving]
  - Upper respiratory tract infection [Recovered/Resolved]
  - Rhinorrhoea [Unknown]
  - Back pain [Unknown]
  - Nausea [Unknown]
  - Asthma [Recovering/Resolving]
  - Chest pain [Recovered/Resolved]
  - Muscle spasms [Unknown]
  - Oropharyngeal pain [Unknown]
  - Dyspnoea [Recovered/Resolved]
  - Escherichia bacteraemia [Recovered/Resolved]
  - Painful respiration [Unknown]
  - Nasal congestion [Unknown]
  - Pain [Unknown]
  - Urosepsis [Recovered/Resolved]
  - Kidney transplant rejection [Not Recovered/Not Resolved]
  - Bacterial sepsis [Recovered/Resolved]
  - Pyrexia [Unknown]
  - Sinus congestion [Unknown]
  - Influenza like illness [Not Recovered/Not Resolved]
  - Blood creatinine increased [Recovering/Resolving]
  - Chills [Unknown]
  - Headache [Unknown]
  - Sinus tachycardia [Unknown]
  - Wheezing [Recovered/Resolved]

NARRATIVE: CASE EVENT DATE: 20140122
